FAERS Safety Report 9332440 (Version 2)
Quarter: 2013Q4

REPORT INFORMATION
  Report Type: Spontaneous
  Country: GB (occurrence: GB)
  Receive Date: 20130606
  Receipt Date: 20131022
  Transmission Date: 20140711
  Serious: Yes (Hospitalization)
  Sender: FDA-Public Use
  Company Number: GB-ACCORD-017880

PATIENT
  Age: 71 Year
  Sex: Male
  Weight: 85 kg

DRUGS (11)
  1. IRINOTECAN HYDROCHLORIDE [Suspect]
     Indication: PANCREATIC CARCINOMA
     Dosage: 370 MG, CYCLIC, EVERY 2 WEEKS
     Route: 042
     Dates: start: 20121003, end: 20121205
  2. DEXAMETHASONE [Suspect]
     Indication: PROPHYLAXIS OF NAUSEA AND VOMITING
     Dosage: 4 MG, 2X/DAY
     Route: 048
     Dates: start: 20121003, end: 20121208
  3. CREON [Concomitant]
  4. OXALIPLATIN [Suspect]
     Indication: PANCREATIC CARCINOMA
     Dosage: 180 MG, CYCLIC, EVERY 14 DAYS
     Route: 042
     Dates: start: 20121003, end: 20121205
  5. FLUOROURACIL [Suspect]
     Indication: PANCREATIC CARCINOMA
     Dosage: 4600 MG CYCLIC (OVER 46 HOURS EVERY 14 DAYS)
     Route: 042
     Dates: start: 20121003, end: 20121207
  6. GRANISETRON [Concomitant]
  7. AMLODIPINE [Concomitant]
  8. CIPROFLOXACIN [Concomitant]
  9. DOMPERIDONE [Concomitant]
  10. THYROXINE [Concomitant]
  11. FOLINIC ACID [Concomitant]

REACTIONS (4)
  - Hypomania [Recovered/Resolved with Sequelae]
  - Depressed mood [Unknown]
  - Malaise [Unknown]
  - Off label use [Unknown]
